FAERS Safety Report 22321692 (Version 1)
Quarter: 2023Q2

REPORT INFORMATION
  Report Type: Spontaneous
  Country: PK (occurrence: PK)
  Receive Date: 20230515
  Receipt Date: 20230515
  Transmission Date: 20230722
  Serious: Yes (Other)
  Sender: FDA-Public Use
  Company Number: PK-STRIDES ARCOLAB LIMITED-2023SP007033

PATIENT
  Age: 31 Year
  Sex: Male

DRUGS (3)
  1. ETOPOSIDE [Suspect]
     Active Substance: ETOPOSIDE
     Indication: Testicular germ cell tumour
     Dosage: UNK
     Route: 065
  2. CISPLATIN [Suspect]
     Active Substance: CISPLATIN
     Indication: Testicular germ cell tumour
     Dosage: UNK
     Route: 065
  3. BLEOMYCIN [Suspect]
     Active Substance: BLEOMYCIN SULFATE
     Indication: Testicular germ cell tumour
     Dosage: UNK
     Route: 065

REACTIONS (1)
  - Acute myocardial infarction [Recovered/Resolved]
